FAERS Safety Report 20479933 (Version 1)
Quarter: 2022Q1

REPORT INFORMATION
  Report Type: Spontaneous
  Country: IT (occurrence: IT)
  Receive Date: 20220216
  Receipt Date: 20220216
  Transmission Date: 20220423
  Serious: Yes (Hospitalization, Other)
  Sender: FDA-Public Use
  Company Number: IT-009507513-2202ITA004132

PATIENT
  Age: 63 Year
  Sex: Male

DRUGS (1)
  1. PEMBROLIZUMAB [Suspect]
     Active Substance: PEMBROLIZUMAB
     Indication: Malignant melanoma stage III
     Dosage: 400 MG/EVERY 6 WEEKS, FLAT DOSE
     Dates: start: 20210125

REACTIONS (6)
  - Lymphocytic infiltration [Recovered/Resolved]
  - Duodenitis [Recovered/Resolved]
  - Gastritis [Recovered/Resolved]
  - Immune-mediated enterocolitis [Recovered/Resolved]
  - Vomiting [Recovered/Resolved]
  - Diarrhoea [Recovered/Resolved]

NARRATIVE: CASE EVENT DATE: 20210726
